FAERS Safety Report 25065880 (Version 3)
Quarter: 2025Q2

REPORT INFORMATION
  Report Type: Report from Study
  Country: GB (occurrence: GB)
  Receive Date: 20250311
  Receipt Date: 20250514
  Transmission Date: 20250717
  Serious: Yes (Hospitalization, Other)
  Sender: ABBVIE
  Company Number: GB-ABBVIE-6170592

PATIENT
  Age: 53 Year
  Sex: Female

DRUGS (2)
  1. SKYRIZI [Suspect]
     Active Substance: RISANKIZUMAB-RZAA
     Indication: Crohn^s disease
     Dosage: STRENGTH: 360MG/2.4ML , DOSE: 1.00EA?DOSE FORM- SOLUTION FOR INJECTION IN CARTRIDGE
     Route: 058
     Dates: start: 20241017
  2. OMEPRAZOLE [Suspect]
     Active Substance: OMEPRAZOLE
     Indication: Product used for unknown indication
     Route: 065

REACTIONS (7)
  - Nephropathy toxic [Unknown]
  - Scar [Unknown]
  - Cholecystectomy [Recovered/Resolved]
  - Nasopharyngitis [Recovering/Resolving]
  - Hyperchlorhydria [Unknown]
  - Hernia [Unknown]
  - Gastrointestinal disorder [Unknown]

NARRATIVE: CASE EVENT DATE: 20250201
